FAERS Safety Report 5092367-9 (Version None)
Quarter: 2006Q3

REPORT INFORMATION
  Report Type: 
  Country: None (occurrence: None)
  Receive Date: 20060825
  Receipt Date: 20060807
  Transmission Date: 20061208
  Serious: Yes (Hospitalization)
  Sender: FDA-Public Use
  Company Number: US200608002134

PATIENT
  Age: 65 Year
  Sex: Male
  Weight: 129.3 kg

DRUGS (2)
  1. ZYPREXA [Suspect]
     Dates: start: 19981205, end: 20040510
  2. SEROQUEL [Concomitant]

REACTIONS (4)
  - ABNORMAL BEHAVIOUR [None]
  - DIABETES MELLITUS [None]
  - LOCALISED INFECTION [None]
  - MYOCARDIAL INFARCTION [None]
